FAERS Safety Report 12395063 (Version 8)
Quarter: 2016Q4

REPORT INFORMATION
  Report Type: Spontaneous
  Country: US (occurrence: US)
  Receive Date: 20160523
  Receipt Date: 20161207
  Transmission Date: 20170207
  Serious: Yes (Hospitalization, Disabling)
  Sender: FDA-Public Use
  Company Number: US-ACTELION-A-NJ2016-136394

PATIENT
  Age: 52 Year
  Sex: Female

DRUGS (12)
  1. DIGOXIN. [Concomitant]
     Active Substance: DIGOXIN
     Dosage: 0.125 MG, UNK
     Route: 048
  2. REMODULIN [Suspect]
     Active Substance: TREPROSTINIL
     Indication: PULMONARY ARTERIAL HYPERTENSION
     Dosage: 80 NG/KG, PER MIN
     Route: 042
     Dates: start: 20140514, end: 20160519
  3. COUMADIN [Concomitant]
     Active Substance: WARFARIN SODIUM
     Dosage: 5 MG, Q OTHER DAY
  4. FOSAMAX [Concomitant]
     Active Substance: ALENDRONATE SODIUM
     Dosage: 70 MG, EVERY SATURDAY
     Route: 048
  5. SILDENAFIL. [Concomitant]
     Active Substance: SILDENAFIL
     Indication: PULMONARY ARTERIAL HYPERTENSION
  6. FLONASE [Concomitant]
     Active Substance: FLUTICASONE PROPIONATE
     Dosage: 50 MCG, Q BEDTIME VIA INTRANASAL ROUTE
  7. LASIX [Concomitant]
     Active Substance: FUROSEMIDE
     Dosage: 40 MG, UNK
     Route: 048
  8. OPSUMIT [Suspect]
     Active Substance: MACITENTAN
     Indication: PULMONARY ARTERIAL HYPERTENSION
     Dosage: 10 MG, QD
     Route: 048
     Dates: start: 20160314, end: 20160624
  9. DOXYCYCLINE. [Concomitant]
     Active Substance: DOXYCYCLINE
     Dosage: 100 MG, Q12HRS
     Route: 048
  10. PREDNISONE. [Concomitant]
     Active Substance: PREDNISONE
     Dosage: 30 MG, UNK
     Route: 048
  11. PEPCID [Concomitant]
     Active Substance: FAMOTIDINE
     Dosage: 20 MG, Q12HRS
     Route: 048
  12. POTASSIUM CHLORIDE. [Concomitant]
     Active Substance: POTASSIUM CHLORIDE
     Dosage: 20 MEQ, UNK

REACTIONS (13)
  - Condition aggravated [Unknown]
  - Condition aggravated [Not Recovered/Not Resolved]
  - Oedema [Recovered/Resolved with Sequelae]
  - Dyspnoea [Recovering/Resolving]
  - Right ventricular failure [Unknown]
  - Hypoxia [Recovered/Resolved with Sequelae]
  - Concomitant disease aggravated [Unknown]
  - Hot flush [Recovering/Resolving]
  - Fatigue [Recovering/Resolving]
  - Stomach mass [Not Recovered/Not Resolved]
  - Dyspnoea exertional [Recovered/Resolved with Sequelae]
  - Peripheral swelling [Unknown]
  - Activities of daily living impaired [Not Recovered/Not Resolved]

NARRATIVE: CASE EVENT DATE: 20160318
